FAERS Safety Report 10185824 (Version 3)
Quarter: 2014Q2

REPORT INFORMATION
  Report Type: Report from Study
  Country: US (occurrence: US)
  Receive Date: 20140521
  Receipt Date: 20140530
  Transmission Date: 20141212
  Serious: Yes (Death, Hospitalization)
  Sender: FDA-Public Use
  Company Number: US-ACTELION-A-NJ2013-86001

PATIENT
  Age: 67 Year
  Sex: Female

DRUGS (4)
  1. VELETRI [Suspect]
     Indication: PULMONARY ARTERIAL HYPERTENSION
     Dosage: 24 UNK, UNK
     Route: 042
  2. VELETRI [Suspect]
     Dosage: 4 NG/KG, PER MIN
     Route: 042
     Dates: start: 20130712
  3. LETAIRIS [Concomitant]
  4. ADCIRCA [Concomitant]

REACTIONS (13)
  - Right ventricular failure [Fatal]
  - Terminal state [Unknown]
  - Nausea [Not Recovered/Not Resolved]
  - Vomiting [Not Recovered/Not Resolved]
  - Hypoxia [Not Recovered/Not Resolved]
  - Condition aggravated [Not Recovered/Not Resolved]
  - Pain in jaw [Unknown]
  - Headache [Unknown]
  - Diarrhoea [Unknown]
  - Flushing [Unknown]
  - Dyspnoea [Recovering/Resolving]
  - Nasal congestion [Unknown]
  - Pain in extremity [Unknown]
